FAERS Safety Report 9657629 (Version 1)
Quarter: 2013Q4

REPORT INFORMATION
  Report Type: Spontaneous
  Country: PT (occurrence: None)
  Receive Date: 20131029
  Receipt Date: 20131029
  Transmission Date: 20140711
  Serious: Yes (Hospitalization)
  Sender: FDA-Public Use
  Company Number: AUR-APL-2013-08735

PATIENT
  Age: 62 Year
  Sex: Female

DRUGS (1)
  1. DONEPEZIL [Suspect]
     Indication: VASCULAR DEMENTIA

REACTIONS (2)
  - Epilepsy [None]
  - Nervous system disorder [None]
